FAERS Safety Report 6336245-3 (Version None)
Quarter: 2009Q3

REPORT INFORMATION
  Report Type: 
  Country: None (occurrence: None)
  Receive Date: 20090901
  Receipt Date: 20090820
  Transmission Date: 20100115
  Serious: Yes (Death)
  Sender: FDA-Public Use
  Company Number: IN-PFIZER INC-2009259092

PATIENT
  Age: 72 Year

DRUGS (1)
  1. SUTENT [Suspect]
     Indication: METASTATIC RENAL CELL CARCINOMA
     Dosage: 50 MG, 1X/DAY, 28 DAYS ON AND 2 WEEKS (14-15 DAYS) OFF
     Route: 048
     Dates: start: 20080527

REACTIONS (1)
  - DEATH [None]
